FAERS Safety Report 6993904-7 (Version None)
Quarter: 2010Q3

REPORT INFORMATION
  Report Type: 
  Country: None (occurrence: None)
  Receive Date: 20100917
  Receipt Date: 20100615
  Transmission Date: 20110219
  Serious: No
  Sender: FDA-Public Use
  Company Number: US-ASTRAZENECA-2010SE27936

PATIENT
  Age: 47 Year
  Sex: Female
  Weight: 113.4 kg

DRUGS (6)
  1. SEROQUEL [Suspect]
     Indication: SLEEP DISORDER
     Route: 048
     Dates: start: 20080101
  2. SEROQUEL [Suspect]
     Indication: DEPRESSION
     Route: 048
     Dates: start: 20080101
  3. SEROQUEL [Suspect]
     Route: 048
     Dates: end: 20090901
  4. SEROQUEL [Suspect]
     Route: 048
     Dates: end: 20090901
  5. SEROQUEL [Suspect]
     Route: 048
     Dates: start: 20100401
  6. SEROQUEL [Suspect]
     Route: 048
     Dates: start: 20100401

REACTIONS (2)
  - DRUG DOSE OMISSION [None]
  - INSOMNIA [None]
